FAERS Safety Report 8198210-3 (Version None)
Quarter: 2012Q1

REPORT INFORMATION
  Report Type: 
  Country: None (occurrence: None)
  Receive Date: 20120309
  Receipt Date: 20120228
  Transmission Date: 20120608
  Serious: Yes (Hospitalization, Other)
  Sender: FDA-Public Use
  Company Number: PHHY2012FR018357

PATIENT
  Sex: Male

DRUGS (11)
  1. EQUANIL [Suspect]
     Dosage: 2 DF, DAILY
     Route: 048
     Dates: start: 20111128, end: 20120110
  2. MODOPAR [Suspect]
     Indication: EXTRAPYRAMIDAL DISORDER
     Dosage: 5 DF, DAILY (100MG/25MG)
     Route: 048
     Dates: start: 20100329
  3. RISPERDAL [Suspect]
     Indication: AGITATION
     Dosage: 0.5 DF, BID
     Route: 048
  4. XANAX [Suspect]
     Indication: ANXIETY
     Dosage: 1 DF, DAILY
     Route: 048
     Dates: end: 20111229
  5. EXELON [Suspect]
     Indication: MEMORY IMPAIRMENT
     Dosage: 2 DF, DAILY
     Route: 048
     Dates: start: 20100329, end: 20111229
  6. ATARAX [Suspect]
     Dates: start: 20120126
  7. XATRAL - SLOW RELEASE [Suspect]
     Indication: BENIGN PROSTATIC HYPERPLASIA
     Dosage: 1 DF, DAILY
     Route: 048
     Dates: end: 20111229
  8. COZAAR [Suspect]
     Indication: HYPERTENSION
     Dosage: 1 DF, DAILY
     Route: 048
  9. ATARAX [Suspect]
     Indication: ANXIETY
     Dosage: 2 DF, DAILY
     Route: 048
     Dates: start: 20111220
  10. EQUANIL [Suspect]
     Indication: ANXIETY
     Dosage: 1 DF, DAILY AT NIGHT
     Route: 048
     Dates: start: 20100329
  11. RABEPRAZOLE SODIUM [Suspect]
     Dosage: 1 DF, DAILY
     Route: 048

REACTIONS (13)
  - MEMORY IMPAIRMENT [None]
  - MALAISE [None]
  - LUNG DISORDER [None]
  - PULMONARY EMBOLISM [None]
  - DEMENTIA [None]
  - HYPERNATRAEMIA [None]
  - HYPERKALAEMIA [None]
  - INFLAMMATION [None]
  - DEHYDRATION [None]
  - CONFUSIONAL STATE [None]
  - INFECTION [None]
  - ANXIETY [None]
  - DISORIENTATION [None]
